FAERS Safety Report 6285677-0 (Version None)
Quarter: 2009Q3

REPORT INFORMATION
  Report Type: 
  Country: None (occurrence: None)
  Receive Date: 20090724
  Receipt Date: 20090715
  Transmission Date: 20100115
  Serious: Yes (Other)
  Sender: FDA-Public Use
  Company Number: 231359K08USA

PATIENT
  Age: 57 Year
  Sex: Female

DRUGS (10)
  1. REBIF [Suspect]
     Indication: MULTIPLE SCLEROSIS
     Dosage: 44 MCG, 3 IN 1 WEEKS, SUBCUTANEOUS
     Route: 058
     Dates: start: 20080908
  2. ATIVAN [Suspect]
     Dosage: 1 MG, AS REQUIRED
  3. BACLOFEN [Suspect]
     Dosage: 10, AS REQUIRED
  4. NEURONTIN [Suspect]
     Dosage: 600, 3 IN 1 DAYS
  5. NALTREXONE (NALTREXONE) [Suspect]
     Dosage: 3.5, 1 IN 1 DAYS
  6. ZONISAMIDE [Suspect]
     Dosage: 150
  7. IBUPROFEN [Concomitant]
  8. FLEXERIL [Concomitant]
  9. ZOLOFT [Concomitant]
  10. VICODIN [Concomitant]

REACTIONS (4)
  - ANGLE CLOSURE GLAUCOMA [None]
  - HALO VISION [None]
  - METAMORPHOPSIA [None]
  - VISION BLURRED [None]
